FAERS Safety Report 7398247 (Version 4)
Quarter: 2013Q4

REPORT INFORMATION
  Report Type: Spontaneous
  Country: US (occurrence: US)
  Receive Date: 20100525
  Receipt Date: 20131018
  Transmission Date: 20140711
  Serious: Yes (Hospitalization, Disabling, Other)
  Sender: FDA-Public Use
  Company Number: US-BAYER-201022993NA

PATIENT
  Age: 50 Year
  Sex: Female
  Weight: 112.2 kg

DRUGS (22)
  1. YASMIN [Suspect]
     Indication: MENORRHAGIA
     Route: 048
     Dates: start: 200402
  2. HYDROCHLOROTHIAZIDE [Concomitant]
     Indication: FLUID RETENTION
     Dosage: UNK
     Dates: start: 2001, end: 20040301
  3. IRON SULFATE [Concomitant]
  4. LEVOXYL [Concomitant]
     Indication: THYROID DISORDER
     Dosage: 0.15 MG, UNK
     Dates: start: 1981
  5. ZESTRIL [Concomitant]
     Indication: HYPERTENSION
     Dosage: UNK
     Dates: start: 200106
  6. ZESTRIL [Concomitant]
     Indication: HYPERTENSION
     Dosage: UNK
     Dates: start: 200106
  7. MEDROXYPROGESTERONE [Concomitant]
  8. PROVERA [Concomitant]
  9. INSULIN [Concomitant]
  10. COLACE [Concomitant]
  11. LANSOPRAZOLE [Concomitant]
  12. LEVOTHYROXINE [Concomitant]
  13. DILANTIN [Concomitant]
  14. OXYCODONE [Concomitant]
  15. MORPHINE SULFATE [Concomitant]
  16. BENADRYL [Concomitant]
  17. MAALOX [Concomitant]
  18. REGLAN [Concomitant]
  19. PSYLLIUM [Concomitant]
  20. BISACODYL [Concomitant]
  21. MILK OF MAGNESIA [Concomitant]
  22. MOXIFLOXACIN [Concomitant]

REACTIONS (13)
  - Transverse sinus thrombosis [None]
  - Jugular vein thrombosis [Recovering/Resolving]
  - Haemorrhage intracranial [Recovered/Resolved]
  - Subarachnoid haemorrhage [Recovered/Resolved]
  - Brain injury [None]
  - Pain in extremity [None]
  - Aphasia [None]
  - Off label use [None]
  - Altered state of consciousness [None]
  - Depression [None]
  - Nausea [None]
  - Hemiparesis [None]
  - Deep vein thrombosis [None]
